FAERS Safety Report 20033077 (Version 1)
Quarter: 2021Q4

REPORT INFORMATION
  Report Type: Spontaneous
  Country: DE (occurrence: DE)
  Receive Date: 20211104
  Receipt Date: 20211104
  Transmission Date: 20220303
  Serious: Yes (Other)
  Sender: FDA-Public Use
  Company Number: DE-ABBVIE-21K-062-4146125-00

PATIENT
  Age: 57 Year
  Sex: Female

DRUGS (6)
  1. VENCLEXTA [Suspect]
     Active Substance: VENETOCLAX
     Indication: Acute myeloid leukaemia
     Route: 048
  2. CYTARABINE [Concomitant]
     Active Substance: CYTARABINE
     Indication: Product used for unknown indication
  3. DAUNORUBICIN [Concomitant]
     Active Substance: DAUNORUBICIN
     Indication: Product used for unknown indication
  4. MELPHALAN [Concomitant]
     Active Substance: MELPHALAN
     Indication: Product used for unknown indication
  5. ATG-FRESENIUS [Concomitant]
     Active Substance: LAPINE T-LYMPHOCYTE IMMUNE GLOBULIN
     Indication: Product used for unknown indication
  6. DECITABINE [Concomitant]
     Active Substance: DECITABINE
     Indication: Product used for unknown indication

REACTIONS (7)
  - Acute myeloid leukaemia recurrent [Unknown]
  - Transplantation complication [Unknown]
  - Off label use [Unknown]
  - Oral herpes [Unknown]
  - Atrial fibrillation [Unknown]
  - Chronic graft versus host disease [Unknown]
  - Acquired gene mutation [Unknown]
